FAERS Safety Report 7562136-6 (Version None)
Quarter: 2011Q2

REPORT INFORMATION
  Report Type: 
  Country: None (occurrence: None)
  Receive Date: 20110622
  Receipt Date: 20110610
  Transmission Date: 20111010
  Serious: Yes (Hospitalization, Other)
  Sender: FDA-Public Use
  Company Number: PL-AMGEN-POLSP2011022173

PATIENT
  Age: 49 Year
  Sex: Male
  Weight: 50 kg

DRUGS (6)
  1. MOVALIS [Concomitant]
     Indication: ANKYLOSING SPONDYLITIS
     Dosage: 15 MG
     Route: 048
     Dates: end: 20110402
  2. SULFASALAZINE [Concomitant]
     Indication: ANKYLOSING SPONDYLITIS
     Dosage: 2 G, 1X/DAY
  3. ENBREL [Suspect]
     Indication: ANKYLOSING SPONDYLITIS
     Dosage: 50 MG, 1X/WEEK
     Route: 058
     Dates: start: 20110329, end: 20110329
  4. MOVALIS [Concomitant]
  5. POLTRAM [Concomitant]
     Dosage: UNK
  6. METYPRED                           /00049602/ [Concomitant]
     Indication: ANKYLOSING SPONDYLITIS
     Dosage: 8 G, QD
     Route: 048

REACTIONS (8)
  - COUGH [None]
  - VERTIGO [None]
  - ASTHENIA [None]
  - PULMONARY MASS [None]
  - HEADACHE [None]
  - CHEST PAIN [None]
  - PYREXIA [None]
  - DYSPNOEA [None]
